FAERS Safety Report 8484691-4 (Version None)
Quarter: 2012Q2

REPORT INFORMATION
  Report Type: 
  Country: None (occurrence: None)
  Receive Date: 20120625
  Receipt Date: 20120618
  Transmission Date: 20120825
  Serious: No
  Sender: FDA-Public Use
  Company Number: 120253

PATIENT
  Age: 21 Month
  Sex: Male

DRUGS (1)
  1. GOLYTELY [Suspect]
     Indication: OFF LABEL USE
     Dates: start: 20120614

REACTIONS (4)
  - HYPOKALAEMIA [None]
  - ARRHYTHMIA [None]
  - SWELLING FACE [None]
  - OEDEMA PERIPHERAL [None]
